FAERS Safety Report 19158121 (Version 1)
Quarter: 2021Q2

REPORT INFORMATION
  Report Type: Spontaneous
  Country: AU (occurrence: AU)
  Receive Date: 20210420
  Receipt Date: 20210420
  Transmission Date: 20210717
  Serious: Yes (Life-Threatening, Hospitalization)
  Sender: FDA-Public Use
  Company Number: AU-MYLANLABS-2021M1013775

PATIENT
  Age: 20 Year
  Sex: Male

DRUGS (6)
  1. INSULIN GLARGINE [Concomitant]
     Active Substance: INSULIN GLARGINE
     Dosage: 6 UNITES AT NIGHT
  2. INSULIN GLARGINE [Concomitant]
     Active Substance: INSULIN GLARGINE
     Indication: TYPE 1 DIABETES MELLITUS
     Dosage: 16 UNITES AT NIGHT
  3. CLOZARIL [Suspect]
     Active Substance: CLOZAPINE
     Indication: SCHIZOPHRENIA
     Dosage: 200 MILLIGRAM, QD
     Route: 048
     Dates: start: 20210125, end: 20210211
  4. METFORMIN [Concomitant]
     Active Substance: METFORMIN HYDROCHLORIDE
     Indication: TYPE 1 DIABETES MELLITUS
     Dosage: 1 GRAM, QD
  5. PALIPERIDONE. [Concomitant]
     Active Substance: PALIPERIDONE
     Dosage: 100 MILLIGRAM, MONTHLY
  6. PALIPERIDONE. [Concomitant]
     Active Substance: PALIPERIDONE
     Indication: SCHIZOPHRENIA
     Dosage: 75 MILLIGRAM, MONTHLY

REACTIONS (4)
  - Lymphocyte count increased [Not Recovered/Not Resolved]
  - Mean cell volume decreased [Recovering/Resolving]
  - Mean cell haemoglobin decreased [Recovered/Resolved]
  - Myocarditis [Recovered/Resolved]

NARRATIVE: CASE EVENT DATE: 2021
